FAERS Safety Report 4843975-9 (Version None)
Quarter: 2005Q4

REPORT INFORMATION
  Report Type: 
  Country: None (occurrence: None)
  Receive Date: 20051202
  Receipt Date: 20051118
  Transmission Date: 20060501
  Serious: Yes (Hospitalization)
  Sender: FDA-Public Use
  Company Number: US-MERCK-0511USA04604

PATIENT
  Age: 74 Year
  Sex: Female

DRUGS (4)
  1. ALDOMET [Suspect]
     Indication: HYPERTENSION
     Route: 048
     Dates: start: 19650301, end: 19660830
  2. DIGITALIS [Concomitant]
     Indication: CARDIAC FAILURE CONGESTIVE
     Route: 065
  3. DIGITALIS [Concomitant]
     Indication: ARTERIOSCLEROSIS
     Route: 065
  4. THYROID [Concomitant]
     Indication: HYPOTHYROIDISM
     Route: 065

REACTIONS (8)
  - CARDIOMEGALY [None]
  - COOMBS POSITIVE HAEMOLYTIC ANAEMIA [None]
  - ESCHERICHIA INFECTION [None]
  - LE CELLS PRESENT [None]
  - RHEUMATOID FACTOR POSITIVE [None]
  - SPLENIC ARTERY ANEURYSM [None]
  - URINARY TRACT INFECTION [None]
  - VENTRICULAR HYPERTROPHY [None]
